FAERS Safety Report 17102963 (Version 1)
Quarter: 2019Q4

REPORT INFORMATION
  Report Type: Spontaneous
  Country: FR (occurrence: FR)
  Receive Date: 20191203
  Receipt Date: 20191203
  Transmission Date: 20200122
  Serious: Yes (Hospitalization)
  Sender: FDA-Public Use
  Company Number: FR-AUROBINDO-AUR-APL-2019-076120

PATIENT
  Age: 64 Year
  Sex: Female
  Weight: 50 kg

DRUGS (2)
  1. MONURIL [Suspect]
     Active Substance: FOSFOMYCIN TROMETHAMINE
     Indication: CYSTITIS
     Dosage: 1 DOSAGE FORM
     Route: 048
     Dates: start: 20180919, end: 20180919
  2. AMOXICILLIN. [Suspect]
     Active Substance: AMOXICILLIN
     Indication: CYSTITIS
     Dosage: UNK
     Route: 048
     Dates: start: 20181001, end: 20181008

REACTIONS (2)
  - Rash erythematous [Recovered/Resolved]
  - Tongue haemorrhage [Recovered/Resolved]

NARRATIVE: CASE EVENT DATE: 20181008
